FAERS Safety Report 8120840-5 (Version None)
Quarter: 2012Q1

REPORT INFORMATION
  Report Type: 
  Country: None (occurrence: None)
  Receive Date: 20120208
  Receipt Date: 20120130
  Transmission Date: 20120608
  Serious: Yes (Hospitalization)
  Sender: FDA-Public Use
  Company Number: ZA-AMGEN-ZAFSP2012006993

PATIENT
  Age: 50 Year
  Sex: Female

DRUGS (5)
  1. ENBREL [Suspect]
     Indication: RHEUMATOID ARTHRITIS
     Dosage: 50 MG, WEEKLY VIAL
     Route: 058
     Dates: start: 20111201
  2. METHOTREXATE [Concomitant]
     Dosage: UNK
     Route: 048
     Dates: start: 20040101
  3. ENBREL [Suspect]
     Dosage: 50 MG, WEEKLY PRE-FILLED SYRINGE
     Route: 058
     Dates: start: 20120102
  4. PLASMOQUINE [Concomitant]
     Dosage: UNK
     Dates: start: 20040101
  5. FOLIC ACID [Concomitant]
     Dosage: UNK
     Dates: start: 20040101

REACTIONS (4)
  - PRURITUS [None]
  - WEIGHT INCREASED [None]
  - RASH MACULAR [None]
  - PARAESTHESIA [None]
